FAERS Safety Report 5375101-4 (Version None)
Quarter: 2007Q2

REPORT INFORMATION
  Report Type: 
  Country: None (occurrence: None)
  Receive Date: 20070625
  Receipt Date: 20070308
  Transmission Date: 20071010
  Serious: Yes (Hospitalization)
  Sender: FDA-Public Use
  Company Number: 06P-163-0353570

PATIENT
  Age: 48 Year
  Sex: Male
  Weight: 61.2356 kg

DRUGS (1)
  1. HUMIRA [Suspect]
     Indication: CROHN'S DISEASE
     Dosage: 40 MG, SYRINE, SUBCUTANEOUS
     Route: 058
     Dates: start: 20051201

REACTIONS (5)
  - ACCIDENTAL EXPOSURE [None]
  - CENTRAL LINE INFECTION [None]
  - INJECTION SITE BRUISING [None]
  - SEPSIS [None]
  - URINARY TRACT INFECTION [None]
